FAERS Safety Report 24702254 (Version 1)
Quarter: 2024Q4

REPORT INFORMATION
  Report Type: Spontaneous
  Country: US (occurrence: None)
  Receive Date: 20241204
  Receipt Date: 20241204
  Transmission Date: 20250115
  Serious: No
  Sender: Public
  Company Number: None

PATIENT
  Age: 54 Year
  Sex: Female
  Weight: 108.45 kg

DRUGS (1)
  1. MOUNJARO [Suspect]
     Active Substance: TIRZEPATIDE
     Indication: Type 2 diabetes mellitus
     Dosage: ONC A WEEK SUBCUTANEOUS
     Route: 058
     Dates: start: 20241204

REACTIONS (2)
  - Myalgia [None]
  - Pain [None]

NARRATIVE: CASE EVENT DATE: 20241204
